FAERS Safety Report 6614047-8 (Version None)
Quarter: 2010Q1

REPORT INFORMATION
  Report Type: 
  Country: None (occurrence: None)
  Receive Date: 20100304
  Receipt Date: 20100219
  Transmission Date: 20100710
  Serious: Yes (Hospitalization)
  Sender: FDA-Public Use
  Company Number: PHHY2010JP08208

PATIENT
  Sex: Female

DRUGS (1)
  1. DICLOFENAC SODIUM [Suspect]
     Dosage: 75 TO 150 MG DAILY
     Route: 048

REACTIONS (8)
  - ABDOMINAL PAIN UPPER [None]
  - ABDOMINAL TENDERNESS [None]
  - DIARRHOEA [None]
  - GASTRIC ULCER [None]
  - ILEAL ULCER [None]
  - INFLAMMATION [None]
  - LARGE INTESTINAL ULCER [None]
  - NASOPHARYNGITIS [None]
